FAERS Safety Report 6211236-1 (Version None)
Quarter: 2009Q2

REPORT INFORMATION
  Report Type: 
  Country: None (occurrence: None)
  Receive Date: 20090602
  Receipt Date: 20090529
  Transmission Date: 20091009
  Serious: Yes (Death, Other)
  Sender: FDA-Public Use
  Company Number: JP-BAYER-200910962BYL

PATIENT
  Age: 72 Year
  Sex: Male

DRUGS (4)
  1. NEXAVAR [Suspect]
     Indication: RENAL CELL CARCINOMA STAGE IV
     Dosage: TOTAL DAILY DOSE: 400 MG  UNIT DOSE: 200 MG
     Route: 048
     Dates: start: 20081117, end: 20081226
  2. SEROQUEL [Concomitant]
     Route: 048
     Dates: end: 20081226
  3. LUVOX [Concomitant]
     Route: 048
     Dates: end: 20081226
  4. DOGMATYL [Concomitant]
     Route: 048
     Dates: end: 20081226

REACTIONS (3)
  - DEATH [None]
  - PALMAR-PLANTAR ERYTHRODYSAESTHESIA SYNDROME [None]
  - SUICIDE ATTEMPT [None]
